FAERS Safety Report 8604840-4 (Version None)
Quarter: 2012Q3

REPORT INFORMATION
  Report Type: 
  Country: None (occurrence: None)
  Receive Date: 20120820
  Receipt Date: 20120813
  Transmission Date: 20120928
  Serious: No
  Sender: FDA-Public Use
  Company Number: US-B.I. PHARMACEUTICALS,INC./RIDGEFIELD-2012-BP-19064BP

PATIENT
  Sex: Male

DRUGS (3)
  1. FLUTICASONE PROPIONATE [Concomitant]
     Route: 055
  2. COMBIVENT [Suspect]
     Indication: CHRONIC OBSTRUCTIVE PULMONARY DISEASE
     Route: 055
     Dates: start: 20101201
  3. ALBUTEROL [Concomitant]
     Route: 055

REACTIONS (2)
  - PNEUMONIA [None]
  - COUGH [None]
